FAERS Safety Report 6907340-2 (Version None)
Quarter: 2010Q3

REPORT INFORMATION
  Report Type: 
  Country: None (occurrence: None)
  Receive Date: 20100802
  Receipt Date: 20100723
  Transmission Date: 20110219
  Serious: Yes (Hospitalization, Other)
  Sender: FDA-Public Use
  Company Number: 2009-193980-NL

PATIENT
  Age: 42 Year
  Sex: Female

DRUGS (6)
  1. IMPLANON [Suspect]
     Indication: CONTRACEPTION
     Dosage: 1 DF;
     Dates: start: 20070401, end: 20090301
  2. DEROXAT [Concomitant]
  3. XATRAL [Concomitant]
  4. IMOVANE [Concomitant]
  5. TYSABRI [Concomitant]
  6. ADVIL LIQUI-GELS [Concomitant]

REACTIONS (5)
  - BREECH PRESENTATION [None]
  - CAESAREAN SECTION [None]
  - DRUG EXPOSURE DURING PREGNANCY [None]
  - PREGNANCY WITH IMPLANT CONTRACEPTIVE [None]
  - UTERINE DISORDER [None]
